FAERS Safety Report 4317383-3 (Version None)
Quarter: 2004Q1

REPORT INFORMATION
  Report Type: 
  Country: None (occurrence: None)
  Receive Date: 20040312
  Receipt Date: 20040227
  Transmission Date: 20041129
  Serious: Yes (Hospitalization)
  Sender: FDA-Public Use
  Company Number: FABR-10491

PATIENT
  Age: 53 Year
  Sex: Male
  Weight: 70 kg

DRUGS (6)
  1. FABRAZYME [Suspect]
     Indication: FABRY'S DISEASE
     Dosage: 70 MG Q2WKS IV
     Route: 042
     Dates: start: 20010622
  2. PREDNISONE [Suspect]
     Indication: PREMEDICATION
     Dosage: 50 MG Q2WKS PO
     Route: 048
  3. ISCOVER [Concomitant]
  4. UNAT [Concomitant]
  5. ENAHEXAL [Concomitant]
  6. BELOC ZOK [Concomitant]

REACTIONS (1)
  - ASEPTIC NECROSIS BONE [None]
